FAERS Safety Report 12598020 (Version 2)
Quarter: 2016Q4

REPORT INFORMATION
  Report Type: Report from Study
  Country: CA (occurrence: CA)
  Receive Date: 20160726
  Receipt Date: 20161014
  Transmission Date: 20170207
  Serious: Yes (Death, Hospitalization)
  Sender: FDA-Public Use
  Company Number: CA-HLSUS-2016-CA-000257

PATIENT
  Age: 63 Year
  Sex: Male
  Weight: 60 kg

DRUGS (8)
  1. TYLENOL [Concomitant]
     Active Substance: ACETAMINOPHEN
     Dosage: 2 TABLET 4 TIMES A DAY REGULAR
     Route: 048
  2. RIVOTRIL [Concomitant]
     Active Substance: CLONAZEPAM
     Dosage: 2 TABLETS THRICE A DAY REGULAR
     Route: 048
  3. DECADRON [Concomitant]
     Active Substance: DEXAMETHASONE
     Dosage: 1/2 TABLET TWICE A DAY REGULAR
     Route: 048
  4. ZORAX [Concomitant]
     Dosage: 1 TABLET AT BED TIME REGULAR
     Route: 048
  5. NAPROXEN. [Concomitant]
     Active Substance: NAPROXEN
     Dosage: 1 TABLET TWICE A DAY REGULAR
     Route: 048
  6. CLOZARIL [Suspect]
     Active Substance: CLOZAPINE
     Indication: SCHIZOPHRENIA
     Dosage: 400 MG
     Route: 048
     Dates: start: 19970428, end: 201606
  7. LEVAQUIN [Concomitant]
     Active Substance: LEVOFLOXACIN
     Route: 048
  8. COLACE [Concomitant]
     Active Substance: DOCUSATE SODIUM
     Dosage: 1 CAPSULE TWICE A DAY REGULAR
     Route: 048

REACTIONS (3)
  - Lung neoplasm malignant [Unknown]
  - Metastasis [Not Recovered/Not Resolved]
  - Death [Fatal]

NARRATIVE: CASE EVENT DATE: 20160610
